FAERS Safety Report 8137504-4 (Version None)
Quarter: 2012Q1

REPORT INFORMATION
  Report Type: 
  Country: None (occurrence: None)
  Receive Date: 20120103
  Receipt Date: 20110912
  Transmission Date: 20120608
  Serious: No
  Sender: FDA-Public Use
  Company Number: AE-2011-001441

PATIENT
  Age: 50 Year
  Weight: 69.8539 kg

DRUGS (4)
  1. PEGASYS [Concomitant]
  2. INCIVEK [Suspect]
     Dosage: 2250 MG (750 MG,3 IN 1 D), ORAL
     Route: 048
     Dates: start: 20110909
  3. DIAZIDE (GLICLAZIDE) [Concomitant]
  4. RIBASPHERE [Concomitant]

REACTIONS (5)
  - SINUS HEADACHE [None]
  - POLLAKIURIA [None]
  - ANAL PRURITUS [None]
  - BODY TEMPERATURE INCREASED [None]
  - THIRST [None]
